FAERS Safety Report 6959626-3 (Version None)
Quarter: 2010Q3

REPORT INFORMATION
  Report Type: 
  Country: None (occurrence: None)
  Receive Date: 20100827
  Receipt Date: 20100813
  Transmission Date: 20110219
  Serious: Yes (Hospitalization)
  Sender: FDA-Public Use
  Company Number: 2010-2825

PATIENT
  Age: 13 Year
  Sex: Male
  Weight: 35 kg

DRUGS (1)
  1. INCRELEX [Suspect]
     Indication: INSULIN-LIKE GROWTH FACTOR DECREASED
     Dosage: 40 MG (20 MG,2 IN 1 D),SUBCUTANEOUS
     Route: 058
     Dates: start: 20091001, end: 20100301

REACTIONS (1)
  - IGA NEPHROPATHY [None]
